FAERS Safety Report 20137570 (Version 1)
Quarter: 2021Q4

REPORT INFORMATION
  Report Type: Spontaneous
  Country: US (occurrence: US)
  Receive Date: 20211201
  Receipt Date: 20211201
  Transmission Date: 20220303
  Serious: Yes (Hospitalization, Other)
  Sender: FDA-Public Use
  Company Number: US-ALVOGEN-2021-ALVOGEN-117843

PATIENT
  Age: 73 Year
  Sex: Male

DRUGS (2)
  1. LIDOCAINE [Suspect]
     Active Substance: LIDOCAINE
     Indication: Echocardiogram
     Route: 061
  2. BENZOCAINE [Suspect]
     Active Substance: BENZOCAINE
     Indication: Echocardiogram
     Route: 061

REACTIONS (2)
  - Methaemoglobinaemia [Recovered/Resolved]
  - Facial paralysis [Recovered/Resolved]
